FAERS Safety Report 11086917 (Version 1)
Quarter: 2015Q2

REPORT INFORMATION
  Report Type: Spontaneous
  Country: DK (occurrence: None)
  Receive Date: 20150430
  Receipt Date: 20150430
  Transmission Date: 20150821
  Serious: Yes (Life-Threatening, Other)
  Sender: FDA-Public Use
  Company Number: 20151340

PATIENT
  Sex: Female

DRUGS (4)
  1. DOXORUBICIN (DOXORUBICIN) [Suspect]
     Active Substance: DOXORUBICIN
     Indication: T-CELL TYPE ACUTE LEUKAEMIA
     Dosage: 40 MILLIGRAM/M2 IN INDUCTION, ACCORDING NOPO ALL 2000; ON DAY 1,22 AND 36
  2. METHOTREXATE (METHOTREXATE) [Suspect]
     Active Substance: METHOTREXATE
     Indication: T-CELL TYPE ACUTE LEUKAEMIA
     Dosage: 10 MILLIGRAM, INDUCTION ACCORDING NOPO ALL 2000; ON DAY 1, 8, 15 AND 29
     Route: 037
  3. ASPARAGINASE [Suspect]
     Active Substance: ASPARAGINASE
     Indication: T-CELL TYPE ACUTE LEUKAEMIA
     Dosage: 2 X 6500 IU/M2 IN WEEK; INDUCTION ACCORDING NOPO ALL 2000; FOR A TOTAL OF 4 DOSES FROM DAY 36
  4. PREDNISOLONE (PREDNIOSOLONE) [Suspect]
     Active Substance: PREDNISOLONE
     Indication: T-CELL TYPE ACUTE LEUKAEMIA
     Dosage: 60 MILLIGRAM/M2 IN 1 DAY; INDUCTION, ACCORDING NOPO ALL 2000; ON DAY 1 TO 36 THEN TAPERED

REACTIONS (10)
  - Adenovirus infection [None]
  - Febrile neutropenia [None]
  - Hepatic failure [None]
  - Stomatitis [None]
  - Product use issue [None]
  - Diarrhoea [None]
  - Conjunctivitis [None]
  - Cystitis [None]
  - Fatigue [None]
  - Constipation [None]
